FAERS Safety Report 8275695-5 (Version None)
Quarter: 2012Q1

REPORT INFORMATION
  Report Type: 
  Country: None (occurrence: None)
  Receive Date: 20120309
  Receipt Date: 20111203
  Transmission Date: 20120608
  Serious: No
  Sender: FDA-Public Use
  Company Number: TH-2011-00511

PATIENT
  Sex: Male

DRUGS (1)
  1. EGRIFTA [Suspect]
     Indication: LIPOHYPERTROPHY

REACTIONS (3)
  - HEADACHE [None]
  - INJECTION SITE PAIN [None]
  - PAIN [None]
